FAERS Safety Report 10072354 (Version 1)
Quarter: 2014Q2

REPORT INFORMATION
  Report Type: Spontaneous
  Country: BR (occurrence: BR)
  Receive Date: 20140411
  Receipt Date: 20140411
  Transmission Date: 20141212
  Serious: Yes (Other)
  Sender: FDA-Public Use
  Company Number: BR-SA-2014SA040635

PATIENT
  Age: 41 Year
  Sex: Female
  Weight: 78 kg

DRUGS (4)
  1. LANTUS [Suspect]
     Indication: TYPE 2 DIABETES MELLITUS
     Route: 065
     Dates: start: 2007, end: 20121212
  2. LANTUS [Suspect]
     Indication: TYPE 2 DIABETES MELLITUS
     Route: 065
  3. CLIKSTAR [Concomitant]
  4. GALVUS MET [Concomitant]
     Indication: TYPE 2 DIABETES MELLITUS
     Dates: start: 2006

REACTIONS (7)
  - Cataract [Recovering/Resolving]
  - Visual impairment [Recovering/Resolving]
  - Joint lock [Recovering/Resolving]
  - Spinal disorder [Unknown]
  - Wound [Recovering/Resolving]
  - Back pain [Unknown]
  - Hypoglycaemia [Recovered/Resolved]
